FAERS Safety Report 16802697 (Version 1)
Quarter: 2019Q3

REPORT INFORMATION
  Report Type: Spontaneous
  Country: TW (occurrence: TW)
  Receive Date: 20190912
  Receipt Date: 20190912
  Transmission Date: 20191005
  Serious: Yes (Hospitalization, Other)
  Sender: FDA-Public Use
  Company Number: TW-AMGEN-TWNSP2019149115

PATIENT
  Age: 59 Year
  Sex: Female

DRUGS (5)
  1. PREDNISOLONE. [Concomitant]
     Active Substance: PREDNISOLONE
     Indication: RHEUMATOID ARTHRITIS
     Dosage: 5 MILLIGRAM, QD
  2. PLAQUENIL [Concomitant]
     Active Substance: HYDROXYCHLOROQUINE SULFATE
     Indication: RHEUMATOID ARTHRITIS
     Dosage: 200 MILLIGRAM, BID
  3. ENBREL [Suspect]
     Active Substance: ETANERCEPT
     Indication: RHEUMATOID ARTHRITIS
     Dosage: 25 MILLIGRAM, Q2WK
     Route: 058
     Dates: start: 20170728
  4. CELEBREX [Concomitant]
     Active Substance: CELECOXIB
     Indication: RHEUMATOID ARTHRITIS
     Dosage: 200 MILLIGRAM, BID
  5. SALAZINE [Concomitant]
     Active Substance: SULFASALAZINE
     Indication: RHEUMATOID ARTHRITIS
     Dosage: 500 MILLIGRAM, QD

REACTIONS (3)
  - Off label use [Unknown]
  - Cellulitis [Not Recovered/Not Resolved]
  - Hepatic function abnormal [Not Recovered/Not Resolved]

NARRATIVE: CASE EVENT DATE: 20170728
